FAERS Safety Report 14126836 (Version 1)
Quarter: 2017Q4

REPORT INFORMATION
  Report Type: Spontaneous
  Country: US (occurrence: US)
  Receive Date: 20171025
  Receipt Date: 20171025
  Transmission Date: 20180321
  Serious: No
  Sender: FDA-Public Use
  Company Number: US-MYLANLABS-2017M1063576

PATIENT
  Sex: Female

DRUGS (1)
  1. CLONIDINE TRANSDERMAL SYSTEM [Suspect]
     Active Substance: CLONIDINE
     Indication: BLOOD PRESSURE ABNORMAL
     Dosage: 1 DF, QW
     Route: 003
     Dates: start: 201708

REACTIONS (9)
  - Application site reaction [Not Recovered/Not Resolved]
  - Feeling cold [Unknown]
  - Fatigue [Not Recovered/Not Resolved]
  - Palpitations [Not Recovered/Not Resolved]
  - Joint swelling [Unknown]
  - Application site pruritus [Recovering/Resolving]
  - Application site erythema [Not Recovered/Not Resolved]
  - Oedema [Not Recovered/Not Resolved]
  - Hot flush [Unknown]

NARRATIVE: CASE EVENT DATE: 2017
